FAERS Safety Report 6684884-2 (Version None)
Quarter: 2010Q2

REPORT INFORMATION
  Report Type: 
  Country: None (occurrence: None)
  Receive Date: 20100416
  Receipt Date: 20100413
  Transmission Date: 20101027
  Serious: Yes (Death, Other)
  Sender: FDA-Public Use
  Company Number: US-JNJFOC-20100403164

PATIENT
  Sex: Male

DRUGS (5)
  1. CONCERTA [Suspect]
     Indication: ATTENTION DEFICIT/HYPERACTIVITY DISORDER
     Route: 048
  2. CONCERTA [Suspect]
     Dosage: TWO TABLETS IN THE MORNING
     Route: 048
  3. CONCERTA [Suspect]
     Dosage: TWO TABLETS IN THE MORNING
     Route: 048
  4. CONCERTA [Suspect]
     Route: 048
  5. CLONIDINE [Concomitant]
     Indication: SOMNOLENCE
     Dosage: BEFORE BED
     Route: 048

REACTIONS (1)
  - COMPLETED SUICIDE [None]
